FAERS Safety Report 5583656-X (Version None)
Quarter: 2008Q1

REPORT INFORMATION
  Report Type: 
  Country: None (occurrence: None)
  Receive Date: 20080102
  Receipt Date: 20071219
  Transmission Date: 20080703
  Serious: Yes (Other)
  Sender: FDA-Public Use
  Company Number: 2007SP024675

PATIENT
  Age: 48 Year
  Sex: Male
  Weight: 68.0396 kg

DRUGS (4)
  1. MIRALAX [Suspect]
     Indication: CONSTIPATION
     Dosage: 17 GM;ONCE;PO
     Route: 048
     Dates: start: 20071129
  2. NEURONTIN [Concomitant]
  3. KLONOPIN [Concomitant]
  4. TORADOL [Concomitant]

REACTIONS (2)
  - DYSURIA [None]
  - HYPOAESTHESIA [None]
